FAERS Safety Report 10243005 (Version 6)
Quarter: 2015Q2

REPORT INFORMATION
  Report Type: Spontaneous
  Country: JP (occurrence: JP)
  Receive Date: 20140618
  Receipt Date: 20150529
  Transmission Date: 20150821
  Serious: Yes (Hospitalization, Disabling)
  Sender: FDA-Public Use
  Company Number: JP-BRISTOL-MYERS SQUIBB COMPANY-20960902

PATIENT
  Age: 61 Year
  Sex: Male
  Weight: 60 kg

DRUGS (6)
  1. ELENTAL [Suspect]
     Active Substance: MINERALS\VITAMINS
     Indication: LARYNGEAL CANCER
     Dosage: 80 MG, QD
     Route: 048
     Dates: start: 20140517, end: 20140711
  2. ERBITUX [Suspect]
     Active Substance: CETUXIMAB
     Indication: LARYNGEAL CANCER
     Dosage: 650 MG/M2, QWK
     Route: 041
     Dates: start: 20140508, end: 20140522
  3. DEXART [Concomitant]
     Active Substance: DEXAMETHASONE SODIUM PHOSPHATE
     Indication: PROPHYLAXIS
     Dosage: 6.6 MG, QWK
     Route: 041
     Dates: start: 20140508, end: 20140522
  4. MINOMYCIN [Suspect]
     Active Substance: MINOCYCLINE HYDROCHLORIDE
     Indication: PROPHYLAXIS
     Dosage: 100 MG, BID
     Route: 048
     Dates: start: 20140508, end: 20140530
  5. POLARAMINE [Concomitant]
     Active Substance: DEXCHLORPHENIRAMINE MALEATE
     Indication: PROPHYLAXIS
     Dosage: 10 MG, QWK
     Route: 041
     Dates: start: 20140508, end: 20140522
  6. ERBITUX [Suspect]
     Active Substance: CETUXIMAB
     Indication: LARYNGEAL CANCER

REACTIONS (11)
  - Dermatitis acneiform [Recovered/Resolved]
  - Oedema peripheral [Recovered/Resolved]
  - Stomatitis [Recovering/Resolving]
  - Pyrexia [Recovered/Resolved]
  - Muscular weakness [Recovered/Resolved]
  - Vasculitis [Recovered/Resolved]
  - Platelet count decreased [Recovered/Resolved]
  - Radiation skin injury [Recovering/Resolving]
  - Pharyngeal inflammation [Recovering/Resolving]
  - Dry mouth [Recovering/Resolving]
  - Dry skin [Recovering/Resolving]

NARRATIVE: CASE EVENT DATE: 20140518
